FAERS Safety Report 6497818-0 (Version None)
Quarter: 2009Q4

REPORT INFORMATION
  Report Type: 
  Country: None (occurrence: None)
  Receive Date: 20091125
  Receipt Date: 20090219
  Transmission Date: 20100525
  Serious: Yes (Hospitalization)
  Sender: FDA-Public Use
  Company Number: 2009BH002816

PATIENT
  Age: 38 Year
  Sex: Female

DRUGS (20)
  1. DIANEAL [Suspect]
     Indication: PERITONEAL DIALYSIS
     Dosage: IP
     Route: 033
     Dates: start: 20050329
  2. EXTRANEAL [Suspect]
     Indication: PERITONEAL DIALYSIS
     Dosage: IP
     Route: 033
     Dates: start: 20051005
  3. AMITRIPTLINE [Concomitant]
  4. ASPIRIN [Concomitant]
  5. DIAZEPAM [Concomitant]
  6. EPOGEN [Concomitant]
  7. ZETIA [Concomitant]
  8. ALLEGRA [Concomitant]
  9. LASIX [Concomitant]
  10. NOVOLOG [Concomitant]
  11. LANTUS [Concomitant]
  12. NOVOLIN N [Concomitant]
  13. LEVOTHYROXINE SODIUM [Concomitant]
  14. METOPROLOL [Concomitant]
  15. ZEMPLAR [Concomitant]
  16. DILANTIN [Concomitant]
  17. K-DUR [Concomitant]
  18. RENAGEL [Concomitant]
  19. SIMVASTATIN [Concomitant]
  20. BACTROBAN [Concomitant]

REACTIONS (1)
  - PERITONITIS [None]
